FAERS Safety Report 25125795 (Version 1)
Quarter: 2025Q1

REPORT INFORMATION
  Report Type: Spontaneous
  Country: AU (occurrence: AU)
  Receive Date: 20250326
  Receipt Date: 20250326
  Transmission Date: 20250409
  Serious: Yes (Other)
  Sender: TAKEDA
  Company Number: AU-JNJFOC-20250351776

PATIENT
  Sex: Male

DRUGS (10)
  1. VELCADE [Suspect]
     Active Substance: BORTEZOMIB
     Indication: Immunosuppression
  2. EMPAVELI [Suspect]
     Active Substance: PEGCETACOPLAN
     Indication: C3 glomerulopathy
  3. EMPAVELI [Suspect]
     Active Substance: PEGCETACOPLAN
     Indication: Ischaemia
  4. CYCLOPHOSPHAMIDE [Suspect]
     Active Substance: CYCLOPHOSPHAMIDE
     Indication: Immunosuppression
     Dosage: 1080 MILLIGRAM, QD
     Dates: start: 202406
  5. ASPIRIN [Concomitant]
     Active Substance: ASPIRIN
  6. ATORVASTATIN [Concomitant]
     Active Substance: ATORVASTATIN
  7. PHENYTOIN [Concomitant]
     Active Substance: PHENYTOIN
  8. PREDNISONE [Concomitant]
     Active Substance: PREDNISONE
     Indication: C3 glomerulopathy
     Dosage: 5 MILLIGRAM, QD
  9. RAMIPRIL [Concomitant]
     Active Substance: RAMIPRIL
  10. WARFARIN SODIUM [Concomitant]
     Active Substance: WARFARIN SODIUM

REACTIONS (1)
  - Bowen^s disease [Unknown]

NARRATIVE: CASE EVENT DATE: 20240601
